FAERS Safety Report 6536728-7 (Version None)
Quarter: 2010Q1

REPORT INFORMATION
  Report Type: 
  Country: None (occurrence: None)
  Receive Date: 20100105
  Receipt Date: 20091223
  Transmission Date: 20100710
  Serious: Yes (Death, Hospitalization)
  Sender: FDA-Public Use
  Company Number: WAES 0811USA00757

PATIENT
  Age: 14 Year
  Sex: Male

DRUGS (6)
  1. COZAAR [Suspect]
     Indication: PROTEINURIA
     Dosage: 50 MG/DAILY PO 25 MG/DAILY PO 50 MG/DAILY PO
     Route: 048
     Dates: start: 20071219, end: 20081103
  2. COZAAR [Suspect]
     Indication: PROTEINURIA
     Dosage: 50 MG/DAILY PO 25 MG/DAILY PO 50 MG/DAILY PO
     Route: 048
     Dates: start: 20081104, end: 20081128
  3. COZAAR [Suspect]
     Indication: PROTEINURIA
     Dosage: 50 MG/DAILY PO 25 MG/DAILY PO 50 MG/DAILY PO
     Route: 048
     Dates: start: 20081129, end: 20090525
  4. PLACEBO BASELINE THERAPY [Suspect]
     Indication: PROTEINURIA
     Dosage: UNK PO
     Route: 048
     Dates: start: 20070829, end: 20070925
  5. TAB PLACEBO (UNSPECIFIED) [Suspect]
     Indication: PROTEINURIA
     Dosage: UNK PO UNK PO
     Route: 048
     Dates: start: 20070926, end: 20071009
  6. TAB PLACEBO (UNSPECIFIED) [Suspect]
     Indication: PROTEINURIA
     Dosage: UNK PO UNK PO
     Route: 048
     Dates: start: 20071010, end: 20071218

REACTIONS (20)
  - ACUTE LYMPHOCYTIC LEUKAEMIA [None]
  - ANAEMIA [None]
  - APHASIA [None]
  - ARTHRALGIA [None]
  - DISSEMINATED INTRAVASCULAR COAGULATION [None]
  - GAIT DISTURBANCE [None]
  - GLOMERULONEPHRITIS PROLIFERATIVE [None]
  - HAEMODIALYSIS [None]
  - HEPATIC FAILURE [None]
  - HYPERKALAEMIA [None]
  - HYPERLIPIDAEMIA [None]
  - HYPONATRAEMIA [None]
  - LEUKOPENIA [None]
  - MENINGEAL DISORDER [None]
  - PAIN IN EXTREMITY [None]
  - PNEUMONIA [None]
  - PYREXIA [None]
  - RENAL FAILURE ACUTE [None]
  - SEPSIS [None]
  - THROMBOCYTOPENIA [None]
